FAERS Safety Report 9230386 (Version 2)
Quarter: 2013Q2

REPORT INFORMATION
  Report Type: Spontaneous
  Country: US (occurrence: US)
  Receive Date: 20130415
  Receipt Date: 20130514
  Transmission Date: 20140414
  Serious: Yes (Disabling, Other)
  Sender: FDA-Public Use
  Company Number: US-PFIZER INC-2013117762

PATIENT
  Age: 62 Year
  Sex: Female
  Weight: 74.38 kg

DRUGS (10)
  1. CADUET [Suspect]
     Indication: HYPERTENSION
     Dosage: [AMLODIPINE BESILATE 10 MG]/ [ATORVASTATIN CALCIUM 40 MG], DAILY
     Dates: start: 2005
  2. CADUET [Suspect]
     Indication: BLOOD CHOLESTEROL INCREASED
     Dosage: [AMLODIPINE BESILATE 10 MG]/ [ATORVASTATIN CALCIUM 40 MG], DAILY
     Route: 048
  3. PREVACID [Concomitant]
     Indication: GASTROOESOPHAGEAL REFLUX DISEASE
     Dosage: 30 MG, DAILY
  4. IBUPROFEN [Concomitant]
     Dosage: 800 MG, 3X/DAY AS NEEDED
     Dates: start: 20121231
  5. PRILOSEC DR [Concomitant]
     Dosage: 20 MG, DAILY
     Dates: start: 20130419
  6. LORATADINE [Concomitant]
     Dosage: 10 MG, DAILY
     Dates: start: 20110815
  7. MECLIZINE HYDROCHLORIDE [Concomitant]
     Dosage: 25 MG, EVERY 8 HOURS AS NEEDED
     Dates: start: 20130107
  8. ENALAPRIL MALEATE [Concomitant]
     Dosage: 10 MG, DAILY
     Dates: start: 20121003
  9. RANITIDINE HYDROCHLORIDE [Concomitant]
     Indication: GASTROOESOPHAGEAL REFLUX DISEASE
     Dosage: 150 MG, 2X/DAY
     Dates: start: 20121205
  10. ASPIRIN [Concomitant]
     Dosage: 81 MG, DAILY
     Route: 048
     Dates: start: 20120711

REACTIONS (4)
  - Intervertebral disc protrusion [Unknown]
  - Amnesia [Unknown]
  - Adrenal adenoma [Unknown]
  - Hepatic steatosis [Unknown]
